FAERS Safety Report 17207075 (Version 1)
Quarter: 2019Q4

REPORT INFORMATION
  Report Type: Spontaneous
  Country: SE (occurrence: SE)
  Receive Date: 20191227
  Receipt Date: 20191227
  Transmission Date: 20200122
  Serious: Yes (Hospitalization)
  Sender: FDA-Public Use
  Company Number: SE-MYLANLABS-2019M1129494

PATIENT
  Sex: Male
  Weight: 120 kg

DRUGS (1)
  1. LERGIGAN (PROMETHAZINE) [Suspect]
     Active Substance: PROMETHAZINE HYDROCHLORIDE
     Indication: PRODUCT USED FOR UNKNOWN INDICATION
     Dosage: 30 ST
     Route: 048
     Dates: start: 20181125, end: 20181125

REACTIONS (9)
  - Depressed level of consciousness [Unknown]
  - Psychotic disorder [Unknown]
  - Electrocardiogram T wave inversion [Unknown]
  - Dysuria [Unknown]
  - Somnolence [Unknown]
  - Intentional overdose [Unknown]
  - Agitation [Unknown]
  - Intentional self-injury [Unknown]
  - Hallucination [Unknown]

NARRATIVE: CASE EVENT DATE: 20181125
